FAERS Safety Report 16388782 (Version 1)
Quarter: 2019Q2

REPORT INFORMATION
  Report Type: Report from Study
  Country: IT (occurrence: IT)
  Receive Date: 20190604
  Receipt Date: 20190604
  Transmission Date: 20190711
  Serious: Yes (Hospitalization, Other)
  Sender: FDA-Public Use
  Company Number: IT-KYOWAKIRIN-2019BKK008508

PATIENT

DRUGS (1)
  1. MOGAMULIZUMAB [Suspect]
     Active Substance: MOGAMULIZUMAB
     Indication: CUTANEOUS T-CELL LYMPHOMA STAGE II
     Dosage: 70.2 MG, WEEKLY (1MG/KG)
     Route: 042
     Dates: start: 20190417, end: 20190517

REACTIONS (3)
  - Ophthalmic herpes simplex [Not Recovered/Not Resolved]
  - Impetigo [Not Recovered/Not Resolved]
  - Pyrexia [Not Recovered/Not Resolved]

NARRATIVE: CASE EVENT DATE: 20190517
